FAERS Safety Report 5392137-8 (Version None)
Quarter: 2007Q3

REPORT INFORMATION
  Report Type: 
  Country: None (occurrence: None)
  Receive Date: 20070720
  Receipt Date: 20070719
  Transmission Date: 20080115
  Serious: Yes (Death, Other)
  Sender: FDA-Public Use
  Company Number: US-BAYER-200616909BWH

PATIENT
  Age: 73 Year
  Sex: Male
  Weight: 62 kg

DRUGS (2)
  1. SORAFENIB [Suspect]
     Indication: NON-SMALL CELL LUNG CANCER
     Dosage: TOTAL DAILY DOSE: 800 MG  UNIT DOSE: 200 MG
     Route: 048
     Dates: start: 20060919, end: 20061113
  2. COUMADIN [Concomitant]

REACTIONS (3)
  - BRONCHITIS [None]
  - NON-SMALL CELL LUNG CANCER [None]
  - PNEUMONIA [None]
